FAERS Safety Report 13645185 (Version 1)
Quarter: 2017Q2

REPORT INFORMATION
  Report Type: Spontaneous
  Country: US (occurrence: US)
  Receive Date: 20170612
  Receipt Date: 20170612
  Transmission Date: 20170830
  Serious: No
  Sender: FDA-Public Use
  Company Number: US-ROCHE-1429324

PATIENT
  Sex: Male
  Weight: 73.55 kg

DRUGS (1)
  1. XELODA [Suspect]
     Active Substance: CAPECITABINE
     Indication: GASTRIC CANCER
     Dosage: 3 TABS IN AM, 2 TABS IN PM DAILY
     Route: 048

REACTIONS (3)
  - Anxiety [Recovered/Resolved]
  - Full blood count decreased [Unknown]
  - Chest pain [Recovered/Resolved]
